FAERS Safety Report 10207743 (Version 1)
Quarter: 2014Q2

REPORT INFORMATION
  Report Type: Spontaneous
  Country: US (occurrence: US)
  Receive Date: 20140530
  Receipt Date: 20140530
  Transmission Date: 20141212
  Serious: No
  Sender: FDA-Public Use
  Company Number: US-GLAXOSMITHKLINE-A1057094A

PATIENT
  Age: 43 Year
  Sex: Male

DRUGS (3)
  1. VENTOLIN [Suspect]
     Indication: ASTHMA
     Route: 055
  2. PRIMATENE [Suspect]
     Indication: ASTHMA
     Route: 055
  3. ALBUTEROL [Suspect]
     Indication: ASTHMA
     Route: 055

REACTIONS (5)
  - Asthma [Unknown]
  - Tremor [Unknown]
  - Heart rate increased [Unknown]
  - Hallucination [Unknown]
  - Tension [Unknown]
